FAERS Safety Report 8024116-6 (Version None)
Quarter: 2012Q1

REPORT INFORMATION
  Report Type: 
  Country: None (occurrence: None)
  Receive Date: 20120103
  Receipt Date: 20111219
  Transmission Date: 20120608
  Serious: Yes (Death, Hospitalization)
  Sender: FDA-Public Use
  Company Number: 2011-534

PATIENT
  Age: 62 Year
  Sex: Male

DRUGS (1)
  1. PRIALT [Suspect]
     Indication: NEUROPATHY PERIPHERAL
     Dosage: UNK UG, ONCE/HOUR, INTRATHECAL
     Route: 037

REACTIONS (2)
  - CARDIOPULMONARY FAILURE [None]
  - PNEUMONIA [None]
